FAERS Safety Report 4931606-9 (Version None)
Quarter: 2006Q1

REPORT INFORMATION
  Report Type: 
  Country: None (occurrence: None)
  Receive Date: 20060303
  Receipt Date: 20060217
  Transmission Date: 20060701
  Serious: Yes (Hospitalization)
  Sender: FDA-Public Use
  Company Number: FR-JNJFOC-20051205136

PATIENT
  Age: 67 Year
  Sex: Female

DRUGS (7)
  1. TOPALGIC [Suspect]
     Indication: DRUG USE FOR UNKNOWN INDICATION
     Route: 042
  2. TOPALGIC [Suspect]
     Route: 048
  3. DI-ANTALVIC [Suspect]
     Route: 048
  4. DI-ANTALVIC [Suspect]
     Route: 048
  5. PERFALGAN [Suspect]
     Indication: DRUG USE FOR UNKNOWN INDICATION
     Route: 042
  6. LOVENOX [Concomitant]
     Route: 058
  7. DOLIPRANE [Concomitant]
     Route: 048

REACTIONS (2)
  - LEUKOPENIA [None]
  - NEUTROPENIA [None]
